FAERS Safety Report 8651001 (Version 3)
Quarter: 2012Q4

REPORT INFORMATION
  Report Type: 
  Country: US (occurrence: US)
  Receive Date: 20120705
  Receipt Date: 20120907
  Transmission Date: 20130627
  Serious: Yes (Other)
  Sender: FDA-Public Use
  Company Number: US-ASTRAZENECA-2012SE42994

PATIENT
  Age: 48 Year
  Sex: Female

DRUGS (10)
  1. NEXIUM [Suspect]
     Route: 048
  2. EFFEXOR XR [Concomitant]
  3. CELEBREX [Concomitant]
  4. LEVOTHYROXIN [Concomitant]
  5. LOVASTATIN [Concomitant]
  6. PHENTERAMINE [Concomitant]
  7. LORTAB [Concomitant]
     Indication: PAIN
  8. LORTAB [Concomitant]
     Indication: MUSCLE SPASMS
  9. SOMA [Concomitant]
     Indication: PAIN
  10. SOMA [Concomitant]
     Indication: MUSCLE SPASMS

REACTIONS (10)
  - Intervertebral disc protrusion [Unknown]
  - Intervertebral disc protrusion [Unknown]
  - Soft tissue necrosis [Unknown]
  - Arthropod bite [Unknown]
  - Fall [Unknown]
  - Neck pain [Unknown]
  - Back pain [Unknown]
  - Musculoskeletal pain [Unknown]
  - Pain in extremity [Unknown]
  - Drug effect incomplete [Unknown]
